FAERS Safety Report 5629632-X (Version None)
Quarter: 2008Q1

REPORT INFORMATION
  Report Type: 
  Country: None (occurrence: None)
  Receive Date: 20080214
  Receipt Date: 20080204
  Transmission Date: 20080703
  Serious: Yes (Hospitalization)
  Sender: FDA-Public Use
  Company Number: 2008BI000573

PATIENT
  Sex: Female
  Weight: 79.8331 kg

DRUGS (2)
  1. AVONEX [Suspect]
     Indication: MULTIPLE SCLEROSIS
     Dosage: 30 UG;QW
     Dates: start: 19980101
  2. TYLENOL (CAPLET) [Concomitant]

REACTIONS (4)
  - INFLUENZA LIKE ILLNESS [None]
  - INTERVERTEBRAL DISC DISPLACEMENT [None]
  - PAIN IN EXTREMITY [None]
  - TREMOR [None]
